FAERS Safety Report 8451025-0 (Version None)
Quarter: 2012Q2

REPORT INFORMATION
  Report Type: 
  Country: None (occurrence: None)
  Receive Date: 20120614
  Receipt Date: 20120614
  Transmission Date: 20120825
  Serious: Yes (Other)
  Sender: FDA-Public Use
  Company Number: None

PATIENT
  Sex: Female

DRUGS (6)
  1. METOPROLOL SUCCINATE [Suspect]
     Dosage: 50MG ONCE DAILY PO
     Route: 048
     Dates: start: 20110203, end: 20120413
  2. ALENDRONATE SODIUM [Concomitant]
  3. RESTASIS [Concomitant]
  4. CIPROFLOXACIN [Concomitant]
  5. LISINOPRIL [Suspect]
     Dosage: 20MG ONCE DAILY PO
     Route: 048
     Dates: start: 20110222, end: 20120529
  6. FLUZONE [Concomitant]

REACTIONS (6)
  - FALL [None]
  - AGGRESSION [None]
  - NIGHTMARE [None]
  - ABNORMAL DREAMS [None]
  - DIZZINESS [None]
  - JOINT DISLOCATION [None]
